FAERS Safety Report 19461292 (Version 1)
Quarter: 2021Q2

REPORT INFORMATION
  Report Type: Spontaneous
  Country: CA (occurrence: CA)
  Receive Date: 20210625
  Receipt Date: 20210625
  Transmission Date: 20210717
  Serious: Yes (Hospitalization, Disabling)
  Sender: FDA-Public Use
  Company Number: CA-PFIZER INC-2021725625

PATIENT
  Age: 18 Year
  Sex: Male
  Weight: 78 kg

DRUGS (74)
  1. ALTEPLASE. [Concomitant]
     Active Substance: ALTEPLASE
  2. AMOXICILLIN. [Concomitant]
     Active Substance: AMOXICILLIN
  3. CALCIUM [Concomitant]
     Active Substance: CALCIUM
  4. CIPROFLOXACIN. [Concomitant]
     Active Substance: CIPROFLOXACIN
  5. FENTANYL. [Concomitant]
     Active Substance: FENTANYL
  6. FOSCARNET SODIUM. [Concomitant]
     Active Substance: FOSCARNET SODIUM
     Route: 042
  7. PANTOPRAZOLE [Concomitant]
     Active Substance: PANTOPRAZOLE
  8. SODIUM [Concomitant]
     Active Substance: SODIUM
  9. TRIMETHOPRIM SULFAMETHOXAZOLE [Concomitant]
     Active Substance: SULFAMETHOXAZOLE\TRIMETHOPRIM
  10. VALGANCICLOVIR. [Concomitant]
     Active Substance: VALGANCICLOVIR
  11. VANCOMYCIN [Concomitant]
     Active Substance: VANCOMYCIN
  12. VENLAFAXINE HYDROCHLORIDE. [Concomitant]
     Active Substance: VENLAFAXINE HYDROCHLORIDE
  13. ETOPOSIDE. [Suspect]
     Active Substance: ETOPOSIDE
     Indication: LYMPHOMA
     Dosage: 100 MG
     Route: 041
  14. AMLODIPINE [Concomitant]
     Active Substance: AMLODIPINE BESYLATE
  15. CEFAZOLIN [Concomitant]
     Active Substance: CEFAZOLIN
  16. CHOLECALCIFEROL [Concomitant]
     Active Substance: CHOLECALCIFEROL
  17. DEXAMETHASONE. [Concomitant]
     Active Substance: DEXAMETHASONE
  18. DIAZEPAM. [Concomitant]
     Active Substance: DIAZEPAM
  19. GANCICLOVIR. [Concomitant]
     Active Substance: GANCICLOVIR
  20. MEROPENEM. [Concomitant]
     Active Substance: MEROPENEM
  21. RANITIDINE. [Concomitant]
     Active Substance: RANITIDINE
  22. CYTARABINE. [Suspect]
     Active Substance: CYTARABINE
     Indication: LYMPHOMA
     Dosage: 4000 MG 1 EVERY 12 HOURS
     Route: 042
  23. HYDROMORPHONE [Concomitant]
     Active Substance: HYDROMORPHONE
  24. LANSOPRAZOLE. [Concomitant]
     Active Substance: LANSOPRAZOLE
  25. VINCRISTINE SULFATE. [Suspect]
     Active Substance: VINCRISTINE SULFATE
     Indication: LYMPHOMA
     Dosage: 0.8 MG
     Route: 041
  26. CYCLOPHOSPHAMIDE. [Suspect]
     Active Substance: CYCLOPHOSPHAMIDE
     Indication: LYMPHOMA
     Dosage: 1500 MG
     Route: 042
  27. CEFTRIAXONE. [Concomitant]
     Active Substance: CEFTRIAXONE
  28. HYDROCORTISONE. [Concomitant]
     Active Substance: HYDROCORTISONE
  29. METHYLPREDNISOLONE. [Concomitant]
     Active Substance: METHYLPREDNISOLONE
  30. MYCAMINE [Concomitant]
     Active Substance: MICAFUNGIN SODIUM
  31. POTASSIUM [Concomitant]
     Active Substance: POTASSIUM
  32. PREDNISONE. [Concomitant]
     Active Substance: PREDNISONE
  33. ETOPOSIDE. [Suspect]
     Active Substance: ETOPOSIDE
     Dosage: 120 MG
     Route: 041
  34. ACETAMINOPHEN. [Concomitant]
     Active Substance: ACETAMINOPHEN
  35. AMPHOTERICIN B. [Concomitant]
     Active Substance: AMPHOTERICIN B
  36. CASPOFUNGIN [Concomitant]
     Active Substance: CASPOFUNGIN
  37. DIPHENHYDRAMINE. [Concomitant]
     Active Substance: DIPHENHYDRAMINE
  38. ESOMEPRAZOLE. [Concomitant]
     Active Substance: ESOMEPRAZOLE MAGNESIUM
  39. ONDANSETRON [Concomitant]
     Active Substance: ONDANSETRON
  40. RISPERIDONE. [Concomitant]
     Active Substance: RISPERIDONE
  41. METHOTREXATE SODIUM. [Suspect]
     Active Substance: METHOTREXATE SODIUM
     Indication: PROPHYLAXIS AGAINST GRAFT VERSUS HOST DISEASE
     Dosage: 10 MG
     Route: 042
  42. FILGRASTIM [Concomitant]
     Active Substance: FILGRASTIM
  43. FUROSEMIDE. [Concomitant]
     Active Substance: FUROSEMIDE
  44. LORAZEPAM. [Concomitant]
     Active Substance: LORAZEPAM
  45. SODIUM PHOSPHATE [Concomitant]
     Active Substance: SODIUM PHOSPHATE
  46. TACROLIMUS. [Concomitant]
     Active Substance: TACROLIMUS
  47. URSODEOXYCHOLIC ACID [Concomitant]
     Active Substance: URSODIOL
  48. VALACYCLOVIR [Concomitant]
     Active Substance: VALACYCLOVIR HYDROCHLORIDE
  49. CYCLOPHOSPHAMIDE. [Suspect]
     Active Substance: CYCLOPHOSPHAMIDE
     Indication: TRANSPLANT
     Dosage: 4800 MG
     Route: 042
  50. FLUDARABINE [Suspect]
     Active Substance: FLUDARABINE PHOSPHATE
     Indication: TRANSPLANT
     Dosage: 50 MG
     Route: 042
  51. ALLOPURINOL. [Concomitant]
     Active Substance: ALLOPURINOL
  52. AMITRIPTYLINE [Concomitant]
     Active Substance: AMITRIPTYLINE
  53. CAFFEINE. [Concomitant]
     Active Substance: CAFFEINE
  54. CETIRIZINE [Concomitant]
     Active Substance: CETIRIZINE HYDROCHLORIDE
  55. CLONIDINE. [Concomitant]
     Active Substance: CLONIDINE
  56. EPINEPHRINE. [Concomitant]
     Active Substance: EPINEPHRINE
  57. MESNA. [Concomitant]
     Active Substance: MESNA
  58. MORPHINE [Concomitant]
     Active Substance: MORPHINE
  59. PIMOZIDE. [Concomitant]
     Active Substance: PIMOZIDE
  60. PIPERACILLIN AND TAZOBACTAM [Concomitant]
     Active Substance: PIPERACILLIN SODIUM\TAZOBACTAM SODIUM
  61. RABBIT ANTI HUMAN THYMOCYTE IMMUNOGLOBULIN [Concomitant]
     Active Substance: LAPINE T-LYMPHOCYTE IMMUNE GLOBULIN
  62. TRANEXAMIC ACID. [Concomitant]
     Active Substance: TRANEXAMIC ACID
  63. DOXORUBICIN HYDROCHLORIDE INJECTION [Suspect]
     Active Substance: DOXORUBICIN HYDROCHLORIDE
     Indication: LYMPHOMA
     Dosage: 20 MG
     Route: 041
  64. IFOSFAMIDE. [Suspect]
     Active Substance: IFOSFAMIDE
     Indication: LYMPHOMA
     Dosage: 3000 MG
     Route: 041
  65. BUPIVACAINE. [Concomitant]
     Active Substance: BUPIVACAINE
  66. DOCUSATE SODIUM. [Concomitant]
     Active Substance: DOCUSATE SODIUM
  67. INSULIN [Concomitant]
     Active Substance: INSULIN NOS
  68. MAGNESIUM [Concomitant]
     Active Substance: MAGNESIUM
  69. MELATONIN [Concomitant]
     Active Substance: MELATONIN
  70. METHADONE [Concomitant]
     Active Substance: METHADONE HYDROCHLORIDE
  71. METOCLOPRAMIDE. [Concomitant]
     Active Substance: METOCLOPRAMIDE
  72. NICOTINE. [Concomitant]
     Active Substance: NICOTINE
  73. POLYETHYLENE GLYCOL [MACROGOL] [Concomitant]
     Active Substance: POLYETHYLENE GLYCOLS
  74. RUXOLITINIB [Concomitant]
     Active Substance: RUXOLITINIB

REACTIONS (2)
  - Fatigue [Recovered/Resolved]
  - Hypogonadism [Recovered/Resolved]
